FAERS Safety Report 20374787 (Version 1)
Quarter: 2022Q1

REPORT INFORMATION
  Report Type: Spontaneous
  Country: US (occurrence: US)
  Receive Date: 20220125
  Receipt Date: 20220125
  Transmission Date: 20220423
  Serious: Yes (Other)
  Sender: FDA-Public Use
  Company Number: US-GLAXOSMITHKLINE-US2022GSK012660

PATIENT
  Sex: Female

DRUGS (3)
  1. ZANTAC [Suspect]
     Active Substance: RANITIDINE HYDROCHLORIDE
     Indication: Flatulence
     Dosage: UNKNOWN AT THIS TIME, U
     Route: 065
     Dates: start: 198801, end: 198801
  2. ZANTAC [Suspect]
     Active Substance: RANITIDINE HYDROCHLORIDE
     Indication: Flatulence
     Dosage: UNKNOWN AT THIS TIME, U
     Route: 065
     Dates: start: 198801, end: 198801
  3. RANITIDINE HYDROCHLORIDE [Suspect]
     Active Substance: RANITIDINE HYDROCHLORIDE
     Indication: Flatulence
     Dosage: UNKNOWN AT THIS TIME, WE
     Route: 065
     Dates: start: 198801, end: 202003

REACTIONS (1)
  - Pancreatic carcinoma [Unknown]
